FAERS Safety Report 24765563 (Version 1)
Quarter: 2024Q4

REPORT INFORMATION
  Report Type: Spontaneous
  Country: US (occurrence: None)
  Receive Date: 20241221
  Receipt Date: 20241221
  Transmission Date: 20250114
  Serious: Yes (Hospitalization)
  Sender: Public
  Company Number: None

PATIENT
  Sex: Male
  Weight: 88.6 kg

DRUGS (4)
  1. FLUOROURACIL [Suspect]
     Active Substance: FLUOROURACIL
  2. LEUCOVORIN CALCIUM [Suspect]
     Active Substance: LEUCOVORIN CALCIUM
  3. NIVOLUMAB [Suspect]
     Active Substance: NIVOLUMAB
  4. ELOXATIN [Suspect]
     Active Substance: OXALIPLATIN

REACTIONS (3)
  - Muscular weakness [None]
  - Cholecystitis [None]
  - Gallbladder enlargement [None]

NARRATIVE: CASE EVENT DATE: 20241217
